FAERS Safety Report 21163262 (Version 1)
Quarter: 2022Q3

REPORT INFORMATION
  Report Type: Spontaneous
  Country: US (occurrence: None)
  Receive Date: 20220802
  Receipt Date: 20220802
  Transmission Date: 20221027
  Serious: No
  Sender: FDA-Public Use
  Company Number: None

PATIENT
  Age: 69 Year
  Sex: Male
  Weight: 67.95 kg

DRUGS (5)
  1. PAXLOVID [Suspect]
     Active Substance: NIRMATRELVIR\RITONAVIR
     Indication: COVID-19
  2. ATORVASTATIN [Concomitant]
     Active Substance: ATORVASTATIN
  3. FENOFIBRATE [Concomitant]
     Active Substance: FENOFIBRATE
  4. ALBUTEROL [Concomitant]
     Active Substance: ALBUTEROL
  5. SYMBICORT [Concomitant]
     Active Substance: BUDESONIDE\FORMOTEROL FUMARATE DIHYDRATE

REACTIONS (7)
  - Malaise [None]
  - Fatigue [None]
  - Pain [None]
  - Nasal congestion [None]
  - Cough [None]
  - Headache [None]
  - COVID-19 [None]

NARRATIVE: CASE EVENT DATE: 20220801
